FAERS Safety Report 15201970 (Version 1)
Quarter: 2018Q3

REPORT INFORMATION
  Report Type: Spontaneous
  Country: HU (occurrence: HU)
  Receive Date: 20180726
  Receipt Date: 20180726
  Transmission Date: 20181010
  Serious: Yes (Life-Threatening)
  Sender: FDA-Public Use
  Company Number: HU-TEVA-2018-HU-930705

PATIENT
  Age: 73 Year
  Sex: Female

DRUGS (1)
  1. DICLOFENAC [Suspect]
     Active Substance: DICLOFENAC
     Indication: FOOT DEFORMITY
     Route: 062

REACTIONS (2)
  - Respiratory failure [Recovered/Resolved]
  - Anaphylactic shock [Recovered/Resolved]
